FAERS Safety Report 7748322-0 (Version None)
Quarter: 2011Q3

REPORT INFORMATION
  Report Type: 
  Country: None (occurrence: None)
  Receive Date: 20110913
  Receipt Date: 20110906
  Transmission Date: 20111222
  Serious: Yes (Other)
  Sender: FDA-Public Use
  Company Number: PHEH2009US02428

PATIENT
  Sex: Female

DRUGS (44)
  1. OMEPRAZOLE [Concomitant]
  2. SPIRONOLACTONE [Concomitant]
  3. PERCOCET [Concomitant]
  4. RABEPRAZOLE SODIUM [Concomitant]
  5. DEXAMETHASONE [Concomitant]
  6. PERIDEX [Concomitant]
  7. AZITHROMYCIN [Concomitant]
  8. ONDANSETRON [Concomitant]
  9. AMITRIPTYLINE HCL [Concomitant]
  10. MAXALT [Concomitant]
  11. HYDROXYCHLOROQUINE [Concomitant]
  12. DICLOFENAC SODIUM [Concomitant]
     Dosage: 75 MG, PRN
  13. KENALOG [Concomitant]
  14. ERYTHROMYCIN [Concomitant]
  15. VICODIN [Concomitant]
  16. FERROUS GLUCONATE [Concomitant]
  17. METRONIDAZOLE [Concomitant]
  18. PREDNISONE [Concomitant]
     Dosage: UNK
     Dates: end: 20050501
  19. FUROSEMIDE [Concomitant]
  20. HYDROCODONE [Concomitant]
  21. OXYCODONE HCL [Concomitant]
  22. CELECOXIB [Concomitant]
  23. MOBIC [Concomitant]
  24. HYDROMORPHONE HCL [Concomitant]
  25. MORPHINE [Concomitant]
  26. ASPIRIN [Concomitant]
  27. LOVENOX [Concomitant]
  28. ELAVIL [Concomitant]
  29. AREDIA [Suspect]
     Indication: MULTIPLE MYELOMA
     Dosage: UNK
     Dates: end: 20070101
  30. PROMETHAZINE [Concomitant]
  31. ZITHROMAX [Concomitant]
  32. METHADONE HCL [Concomitant]
  33. VISTARIL [Concomitant]
  34. RANITIDINE [Concomitant]
  35. THALIDOMIDE [Concomitant]
     Dosage: UNK
     Dates: start: 20041101, end: 20070101
  36. CLINDAMYCIN [Concomitant]
     Dosage: 300 MG, UNK
  37. DECADRON [Concomitant]
  38. CIPRO [Concomitant]
     Dosage: 500 MG, BID
  39. PRILOSEC [Concomitant]
  40. TORADOL [Concomitant]
  41. MS CONTIN [Concomitant]
  42. PROPRANOLOL [Concomitant]
  43. ALDACTONE [Concomitant]
  44. QUININE SULFATE [Concomitant]

REACTIONS (48)
  - TOOTH LOSS [None]
  - EATING DISORDER [None]
  - ANHEDONIA [None]
  - CELLULITIS [None]
  - PNEUMONIA [None]
  - OSTEOMYELITIS [None]
  - DENTAL CARIES [None]
  - FIBROMYALGIA [None]
  - MUSCULOSKELETAL PAIN [None]
  - BRONCHITIS [None]
  - SWELLING FACE [None]
  - PYURIA [None]
  - CERVICAL DYSPLASIA [None]
  - PAIN IN EXTREMITY [None]
  - OEDEMA PERIPHERAL [None]
  - MUSCLE SPASMS [None]
  - THROMBOPHLEBITIS [None]
  - LIFE EXPECTANCY SHORTENED [None]
  - ARNOLD-CHIARI MALFORMATION [None]
  - OSTEONECROSIS OF JAW [None]
  - DEFORMITY [None]
  - EMOTIONAL DISTRESS [None]
  - ANXIETY [None]
  - INJURY [None]
  - TOOTH ABSCESS [None]
  - SINUSITIS [None]
  - ROTATOR CUFF SYNDROME [None]
  - HYPERGLOBULINAEMIA [None]
  - PAIN [None]
  - DISCOMFORT [None]
  - PAIN IN JAW [None]
  - FRACTURE [None]
  - NEUROPATHY PERIPHERAL [None]
  - TRISMUS [None]
  - PAROTITIS [None]
  - URINARY TRACT INFECTION [None]
  - PHLEBITIS [None]
  - PHYSICAL DISABILITY [None]
  - PERIODONTAL DISEASE [None]
  - PERONEAL NERVE PALSY [None]
  - GASTROOESOPHAGEAL REFLUX DISEASE [None]
  - IRON DEFICIENCY ANAEMIA [None]
  - GINGIVITIS [None]
  - SLEEP APNOEA SYNDROME [None]
  - ASTHENIA [None]
  - DUODENAL ULCER [None]
  - DYSPEPSIA [None]
  - DIVERTICULITIS [None]
